FAERS Safety Report 20820180 (Version 2)
Quarter: 2022Q2

REPORT INFORMATION
  Report Type: Spontaneous
  Country: PT (occurrence: PT)
  Receive Date: 20220512
  Receipt Date: 20220525
  Transmission Date: 20220721
  Serious: Yes (Hospitalization)
  Sender: FDA-Public Use
  Company Number: PT-BAYER-2022A068158

PATIENT
  Age: 75 Year
  Sex: Female

DRUGS (1)
  1. IOPROMIDE [Suspect]
     Active Substance: IOPROMIDE

REACTIONS (8)
  - Anaphylactic shock [None]
  - Cyanosis central [None]
  - Oxygen saturation decreased [None]
  - Cardiac arrest [None]
  - Angioedema [None]
  - Dyspnoea [None]
  - Agitation [None]
  - Urticaria [None]
